FAERS Safety Report 4864979-6 (Version None)
Quarter: 2005Q4

REPORT INFORMATION
  Report Type: 
  Country: None (occurrence: None)
  Receive Date: 20051223
  Receipt Date: 20051129
  Transmission Date: 20060501
  Serious: Yes (Hospitalization)
  Sender: FDA-Public Use
  Company Number: PHHO2005JP18866

PATIENT
  Age: 77 Year
  Sex: Female

DRUGS (3)
  1. DIOVAN [Suspect]
     Indication: HYPERTENSION
     Dosage: 80 MG, QD
     Route: 048
     Dates: start: 20031016, end: 20050201
  2. DIOVAN [Suspect]
     Dosage: 80 MG, QD
     Dates: start: 20050331, end: 20050412
  3. ASPIRIN [Concomitant]

REACTIONS (4)
  - CAROTID ARTERY STENOSIS [None]
  - DIFFICULTY IN WALKING [None]
  - HEMIPLEGIA [None]
  - TRANSIENT ISCHAEMIC ATTACK [None]
